FAERS Safety Report 10201360 (Version 2)
Quarter: 2015Q3

REPORT INFORMATION
  Report Type: Spontaneous
  Country: BR (occurrence: BR)
  Receive Date: 20140528
  Receipt Date: 20150908
  Transmission Date: 20151125
  Serious: Yes (Other)
  Sender: FDA-Public Use
  Company Number: BR-ABBVIE-14P-020-1241192-00

PATIENT
  Age: 13 Year
  Sex: Male
  Weight: 130 kg

DRUGS (2)
  1. DEPAKOTE ER [Suspect]
     Active Substance: DIVALPROEX SODIUM
     Dosage: DAILY DOSE: 1000MG, AT 6 AM AND 6 PM
     Route: 065
     Dates: start: 201111
  2. DEPAKOTE ER [Suspect]
     Active Substance: DIVALPROEX SODIUM
     Indication: PRODUCT USED FOR UNKNOWN INDICATION
     Dosage: 500 MG AT NIGHT
     Route: 065
     Dates: start: 201010, end: 201111

REACTIONS (7)
  - Speech disorder [Recovered/Resolved]
  - Weight increased [Recovering/Resolving]
  - Underdose [Unknown]
  - Seizure [Recovered/Resolved]
  - Visual impairment [Recovered/Resolved]
  - Malaise [Recovered/Resolved]
  - Blood glucose abnormal [Unknown]

NARRATIVE: CASE EVENT DATE: 201111
